FAERS Safety Report 13261596 (Version 1)
Quarter: 2017Q1

REPORT INFORMATION
  Report Type: Spontaneous
  Country: GB (occurrence: GB)
  Receive Date: 20170222
  Receipt Date: 20170222
  Transmission Date: 20170428
  Serious: Yes (Other)
  Sender: FDA-Public Use
  Company Number: GB-MYLANLABS-2017M1011358

PATIENT

DRUGS (1)
  1. MONTELUKAST [Suspect]
     Active Substance: MONTELUKAST SODIUM
     Indication: ASTHMA
     Route: 065

REACTIONS (7)
  - Urticaria [Unknown]
  - Anxiety [Unknown]
  - Depression [Unknown]
  - White blood cell count increased [Unknown]
  - Hypersensitivity [Unknown]
  - Dizziness [Unknown]
  - Wheezing [Unknown]
